FAERS Safety Report 7076690-4 (Version None)
Quarter: 2010Q4

REPORT INFORMATION
  Report Type: 
  Country: None (occurrence: None)
  Receive Date: 20101101
  Receipt Date: 20101021
  Transmission Date: 20110411
  Serious: Yes (Other)
  Sender: FDA-Public Use
  Company Number: US-PFIZER INC-2010134774

PATIENT
  Sex: Male
  Weight: 93 kg

DRUGS (3)
  1. LIPITOR [Suspect]
     Indication: BLOOD CHOLESTEROL INCREASED
     Dosage: UNK
     Route: 048
     Dates: start: 20020101
  2. LIPITOR [Suspect]
     Indication: CARDIOVASCULAR DISORDER
  3. FISH OIL [Concomitant]
     Dosage: UNK

REACTIONS (3)
  - DEPRESSION [None]
  - PAIN [None]
  - PERSONALITY CHANGE [None]
